FAERS Safety Report 11199959 (Version 1)
Quarter: 2015Q2

REPORT INFORMATION
  Report Type: Spontaneous
  Country: US (occurrence: None)
  Receive Date: 20150617
  Receipt Date: 20150617
  Transmission Date: 20150821
  Serious: Yes (Other)
  Sender: FDA-Public Use
  Company Number: None

PATIENT

DRUGS (2)
  1. SUCCINYLCHOLINE [Suspect]
     Active Substance: SUCCINYLCHOLINE
     Indication: ELECTROCONVULSIVE THERAPY
     Dates: start: 20150610
  2. SUCCINYLCHOLINE 200MG/10ML [Suspect]
     Active Substance: SUCCINYLCHOLINE
     Route: 042
     Dates: start: 20150610

REACTIONS (2)
  - Product quality issue [None]
  - Drug effect decreased [None]

NARRATIVE: CASE EVENT DATE: 20150610
